FAERS Safety Report 14678732 (Version 1)
Quarter: 2018Q1

REPORT INFORMATION
  Report Type: Spontaneous
  Country: IT (occurrence: IT)
  Receive Date: 20180326
  Receipt Date: 20180326
  Transmission Date: 20180509
  Serious: Yes (Hospitalization)
  Sender: FDA-Public Use
  Company Number: IT-AUROBINDO-AUR-APL-2018-015683

PATIENT
  Age: 82 Year
  Sex: Female
  Weight: 70 kg

DRUGS (1)
  1. AMIODARONE TABLETS [Suspect]
     Active Substance: AMIODARONE
     Indication: ATRIAL FLUTTER
     Dosage: 200 MILLIGRAM, ONCE A DAY
     Route: 048

REACTIONS (2)
  - Vertigo [Recovered/Resolved with Sequelae]
  - Balance disorder [Recovered/Resolved with Sequelae]
